FAERS Safety Report 5453422-4 (Version None)
Quarter: 2007Q3

REPORT INFORMATION
  Report Type: 
  Country: None (occurrence: None)
  Receive Date: 20070913
  Receipt Date: 20070907
  Transmission Date: 20080115
  Serious: Yes (Death, Life-Threatening)
  Sender: FDA-Public Use
  Company Number: 0709-718

PATIENT
  Age: 1 Day
  Sex: Female
  Weight: 0.58 kg

DRUGS (1)
  1. CUROSURF [Suspect]
     Indication: RESPIRATORY DISTRESS
     Dosage: ONCE, INTRATRACHEAL
     Route: 039
     Dates: start: 20041020, end: 20041020

REACTIONS (7)
  - DEATH NEONATAL [None]
  - HYPOTENSION [None]
  - HYPOTHERMIA [None]
  - PULMONARY HAEMORRHAGE [None]
  - RENAL FAILURE [None]
  - RESPIRATORY FAILURE [None]
  - SEPSIS [None]
